FAERS Safety Report 5416778-4 (Version None)
Quarter: 2007Q3

REPORT INFORMATION
  Report Type: 
  Country: None (occurrence: None)
  Receive Date: 20070816
  Receipt Date: 20070806
  Transmission Date: 20080115
  Serious: Yes (Other)
  Sender: FDA-Public Use
  Company Number: BE-ASTRAZENECA-2005AC01794

PATIENT
  Age: 28690 Day
  Sex: Male

DRUGS (7)
  1. SYMBICORT [Suspect]
     Indication: COUGH
     Route: 055
     Dates: start: 20051015, end: 20051024
  2. AMOXI-CLAV [Suspect]
     Indication: PNEUMONIA
     Route: 048
     Dates: start: 20051015, end: 20051022
  3. ISOBETADINE [Suspect]
     Indication: FUNGAL INFECTION
     Route: 002
     Dates: start: 20051001, end: 20051108
  4. IRBESARTAN [Concomitant]
     Indication: DIABETES MELLITUS
     Route: 048
  5. NEXIUM [Concomitant]
     Indication: BARRETT'S OESOPHAGUS
     Route: 048
  6. GLUCOPHAGE [Concomitant]
     Indication: DIABETES MELLITUS
     Dosage: 850
     Route: 048
  7. RYTHMOL [Concomitant]
     Indication: ARRHYTHMIA
     Dosage: 150
     Route: 048

REACTIONS (2)
  - ORAL FUNGAL INFECTION [None]
  - TOOTH DISCOLOURATION [None]
